FAERS Safety Report 4678153-X (Version None)
Quarter: 2005Q2

REPORT INFORMATION
  Report Type: 
  Country: None (occurrence: None)
  Receive Date: 20050527
  Receipt Date: 20050520
  Transmission Date: 20051028
  Serious: Yes (Death)
  Sender: FDA-Public Use
  Company Number: 2005077300

PATIENT
  Age: 65 Year
  Sex: Female

DRUGS (9)
  1. LIPITOR [Suspect]
     Indication: HYPERCHOLESTEROLAEMIA
     Dosage: 20 MG (20 MG, 1 IN 1 D), ORAL
     Route: 048
     Dates: start: 20050401
  2. LANOXIN [Concomitant]
  3. NPH INSULIN [Concomitant]
  4. INSULIN REGULAR (INSULIN) [Concomitant]
  5. METFORMIN HCL [Concomitant]
  6. LASIX [Concomitant]
  7. WARFARIN SODIUM [Concomitant]
  8. SPIRONOLACTONE [Concomitant]
  9. AROMASIN [Concomitant]

REACTIONS (3)
  - CARDIAC ARREST [None]
  - DIARRHOEA [None]
  - MYOCARDIAL INFARCTION [None]
